FAERS Safety Report 5451901-7 (Version None)
Quarter: 2007Q3

REPORT INFORMATION
  Report Type: 
  Country: None (occurrence: None)
  Receive Date: 20070912
  Receipt Date: 20070830
  Transmission Date: 20080115
  Serious: Yes (Death, Hospitalization)
  Sender: FDA-Public Use
  Company Number: 2007JP003588

PATIENT
  Age: 65 Year
  Sex: Female
  Weight: 19.6408 kg

DRUGS (19)
  1. PROGRAF [Suspect]
     Indication: RHEUMATOID ARTHRITIS
     Dosage: 1 MG, UID/QD, ORAL
     Route: 048
     Dates: start: 20070621, end: 20070628
  2. ENBREL [Suspect]
     Indication: RHEUMATOID ARTHRITIS
     Dosage: 50 MG, WEEKLY, SUBCUTANEOUS
     Route: 058
     Dates: start: 20061110, end: 20070718
  3. PREDONINE (PREDNISONE) TABLET [Suspect]
     Indication: RHEUMATOID ARTHRITIS
     Dosage: 10 MG, UID/QD, ORAL; 30 MG, D, ORAL
     Route: 048
     Dates: start: 19980801, end: 20070724
  4. PREDONINE (PREDNISONE) TABLET [Suspect]
     Indication: RHEUMATOID ARTHRITIS
     Dosage: 10 MG, UID/QD, ORAL; 30 MG, D, ORAL
     Route: 048
     Dates: start: 20070725
  5. ARAVA [Suspect]
     Indication: RHEUMATOID ARTHRITIS
     Dosage: 20 MG, IUD/QD, ORAL
     Route: 048
     Dates: start: 20031008, end: 20070718
  6. AMLODIN (AMLODIPINE BESILATE)  TABLET [Concomitant]
  7. LIPITOR [Concomitant]
  8. TAKEPRON (LANSOPRAZOLE) TABLET [Concomitant]
  9. ARTIST (CARVEDILOL) TABLET [Concomitant]
  10. DEPAS (ETIZOLAM) TABLET [Concomitant]
  11. BLOPRESS (CANDESARTAN CILEXETIL) TABLET [Concomitant]
  12. JUVELA NICOTINATE (TOCOPHERYL NICOTINATE) CAPSULE [Concomitant]
  13. OSTELUC (ETODOLAC) TABLET [Concomitant]
  14. OPALMON (LIMAPROST) TABLET [Concomitant]
  15. ANPLAG (SARPOGRELATE HYDROCHLORIDE) TABLET [Concomitant]
  16. VOLTAREN [Concomitant]
  17. SIBUL (ETOMIDATE) TABLET [Concomitant]
  18. FERRUM (FERROUS FUMARATE) CAPSULE [Concomitant]
  19. CINAL (ASCORBIC ACID, CALCIUM PANTOTHENATE) TABLET [Concomitant]

REACTIONS (20)
  - ANXIETY [None]
  - AUTOIMMUNE THROMBOCYTOPENIA [None]
  - CARDIAC ARREST [None]
  - CONDITION AGGRAVATED [None]
  - DEPRESSED LEVEL OF CONSCIOUSNESS [None]
  - DIARRHOEA [None]
  - DRUG INEFFECTIVE [None]
  - HAEMATOCHEZIA [None]
  - HEADACHE [None]
  - HYPERKALAEMIA [None]
  - ORAL CANDIDIASIS [None]
  - PAIN [None]
  - PLATELET COUNT DECREASED [None]
  - PLEURAL EFFUSION [None]
  - PNEUMONIA [None]
  - RED BLOOD CELL COUNT DECREASED [None]
  - RENAL FAILURE [None]
  - RENAL IMPAIRMENT [None]
  - TREATMENT NONCOMPLIANCE [None]
  - WHITE BLOOD CELL COUNT DECREASED [None]
